FAERS Safety Report 6342630-6 (Version None)
Quarter: 2009Q3

REPORT INFORMATION
  Report Type: 
  Country: None (occurrence: None)
  Receive Date: 20090908
  Receipt Date: 20090902
  Transmission Date: 20100115
  Serious: Yes (Other)
  Sender: FDA-Public Use
  Company Number: US-JNJFOC-20090901692

PATIENT
  Sex: Female
  Weight: 80.74 kg

DRUGS (6)
  1. DURAGESIC-100 [Suspect]
     Indication: MUSCULOSKELETAL PAIN
     Route: 062
     Dates: start: 20090801
  2. ADDERALL 10 [Concomitant]
     Indication: ATTENTION DEFICIT/HYPERACTIVITY DISORDER
     Route: 048
  3. SEROQUEL [Concomitant]
     Indication: DEPRESSION
     Route: 048
  4. LEXAPRO [Concomitant]
     Indication: BIPOLAR DISORDER
     Route: 048
  5. XANAX [Concomitant]
     Indication: ANXIETY
     Route: 048
  6. LAMICTAL [Concomitant]
     Indication: BIPOLAR DISORDER
     Route: 048

REACTIONS (2)
  - DEPRESSION [None]
  - WRONG TECHNIQUE IN DRUG USAGE PROCESS [None]
